FAERS Safety Report 5595282-7 (Version None)
Quarter: 2008Q1

REPORT INFORMATION
  Report Type: 
  Country: None (occurrence: None)
  Receive Date: 20080117
  Receipt Date: 20080114
  Transmission Date: 20080703
  Serious: Yes (Hospitalization, Disabling, Other)
  Sender: FDA-Public Use
  Company Number: US-MERCK-0707USA02681

PATIENT
  Age: 58 Year
  Sex: Female

DRUGS (5)
  1. FOSAMAX [Suspect]
     Indication: OSTEOPOROSIS
     Route: 048
     Dates: start: 20021109, end: 20040102
  2. COUMADIN [Concomitant]
     Indication: THROMBOSIS
     Route: 065
     Dates: start: 19970101
  3. XANAX [Concomitant]
     Indication: NERVOUSNESS
     Route: 065
     Dates: start: 20010101
  4. XANAX [Concomitant]
     Indication: ANXIETY
     Route: 065
     Dates: start: 20010101
  5. LORTAB [Concomitant]
     Indication: PAIN
     Route: 065
     Dates: start: 19970101

REACTIONS (6)
  - ABDOMINAL PAIN UPPER [None]
  - ANXIETY [None]
  - ARTHRALGIA [None]
  - ASTHMA [None]
  - DEPRESSION [None]
  - OSTEONECROSIS [None]
